FAERS Safety Report 9045606 (Version 1)
Quarter: 2013Q1

REPORT INFORMATION
  Report Type: Report from Study
  Country: US (occurrence: US)
  Receive Date: 20130131
  Receipt Date: 20130131
  Transmission Date: 20140127
  Serious: No
  Sender: FDA-Public Use
  Company Number: US-ABBOTT-12P-163-1014645-00

PATIENT
  Age: 68 Year
  Sex: Female

DRUGS (10)
  1. HUMIRA [Suspect]
     Indication: RHEUMATOID ARTHRITIS
     Route: 058
     Dates: start: 20121109
  2. NOVALOG SLIDING SCALE [Concomitant]
     Indication: TYPE 2 DIABETES MELLITUS
  3. LANTUS [Concomitant]
     Indication: PRODUCT USED FOR UNKNOWN INDICATION
     Dosage: AT 9:00 P.M.
  4. PREMARIN [Concomitant]
     Indication: PRODUCT USED FOR UNKNOWN INDICATION
     Dosage: 625 MG DAILY
  5. LEFLUNOMIDE [Concomitant]
     Indication: RHEUMATOID ARTHRITIS
  6. PREDNISONE [Concomitant]
     Indication: PRODUCT USED FOR UNKNOWN INDICATION
     Dosage: 5 MG, ONE TAB, TWICE DAILY
  7. OXYCODONE [Concomitant]
     Indication: LUMBAR SPINAL STENOSIS
  8. OXYCODONE [Concomitant]
     Indication: PAIN
  9. AMLODIPINE [Concomitant]
     Indication: HYPERTENSION
  10. METFORMIN [Concomitant]
     Indication: PRODUCT USED FOR UNKNOWN INDICATION
     Dosage: 500 MG DAILY

REACTIONS (4)
  - Respiratory tract congestion [Not Recovered/Not Resolved]
  - Injection site pain [Recovered/Resolved]
  - Musculoskeletal stiffness [Unknown]
  - Fatigue [Unknown]
